FAERS Safety Report 22253238 (Version 1)
Quarter: 2023Q2

REPORT INFORMATION
  Report Type: Spontaneous
  Country: CN (occurrence: CN)
  Receive Date: 20230426
  Receipt Date: 20230426
  Transmission Date: 20230721
  Serious: Yes (Other)
  Sender: FDA-Public Use
  Company Number: None

PATIENT
  Age: 38 Year
  Sex: Female
  Weight: 55 kg

DRUGS (10)
  1. CYCLOPHOSPHAMIDE [Suspect]
     Active Substance: CYCLOPHOSPHAMIDE
     Indication: Chemotherapy
     Dosage: 942 MG, QD, DILUTED WITH 0.9% SODIUM CHLORIDE 500 ML
     Route: 041
     Dates: start: 20230404, end: 20230404
  2. CYCLOPHOSPHAMIDE [Suspect]
     Active Substance: CYCLOPHOSPHAMIDE
     Indication: Neoplasm malignant
  3. WATER FOR INJECTION [Suspect]
     Active Substance: WATER
     Indication: Medication dilution
     Dosage: 150 ML, QD, USED ALONG WITH DEXRAZOXANE 1300 MG AND 0.9% SODIUM CHLORIDE 350 ML
     Route: 041
     Dates: start: 20230404, end: 20230404
  4. DEXRAZOXANE [Suspect]
     Active Substance: DEXRAZOXANE
     Indication: Chemotherapy
     Dosage: 1300 MG, QD, USED ALONG WITH WATER FOR INJECTION 150 ML AND 0.9% SODIUM CHLORIDE 350 ML
     Route: 041
     Dates: start: 20230404, end: 20230404
  5. DEXRAZOXANE [Suspect]
     Active Substance: DEXRAZOXANE
     Indication: Neoplasm malignant
  6. EPIRUBICIN HYDROCHLORIDE [Suspect]
     Active Substance: EPIRUBICIN HYDROCHLORIDE
     Indication: Chemotherapy
     Dosage: 157 MG, QD, DILUTED WITH 0.9 % SODIUM CHLORIDE 250 ML
     Route: 041
     Dates: start: 20230404, end: 20230404
  7. EPIRUBICIN HYDROCHLORIDE [Suspect]
     Active Substance: EPIRUBICIN HYDROCHLORIDE
     Indication: Neoplasm malignant
  8. SODIUM CHLORIDE [Suspect]
     Active Substance: SODIUM CHLORIDE
     Indication: Chemotherapy
     Dosage: 500 ML, QD, USED TO DILUTE CYCLOPHOSPHAMIDE 942 MG
     Route: 041
     Dates: start: 20230404, end: 20230404
  9. SODIUM CHLORIDE [Suspect]
     Active Substance: SODIUM CHLORIDE
     Indication: Neoplasm malignant
     Dosage: 250 ML, QD, USED TO DILUTE EPIRUBICIN 157 MG
     Route: 041
     Dates: start: 20230404, end: 20230404
  10. SODIUM CHLORIDE [Suspect]
     Active Substance: SODIUM CHLORIDE
     Dosage: 350 ML, QD, USED ALONG WITH DEXRAZOXANE 1300 MG AND WATER FOR INJECTION 150 ML
     Route: 041
     Dates: start: 20230404, end: 20230404

REACTIONS (1)
  - Myelosuppression [Recovering/Resolving]

NARRATIVE: CASE EVENT DATE: 20230412
